FAERS Safety Report 4988276-3 (Version None)
Quarter: 2006Q2

REPORT INFORMATION
  Report Type: 
  Country: None (occurrence: None)
  Receive Date: 20060425
  Receipt Date: 20060410
  Transmission Date: 20061013
  Serious: Yes (Other)
  Sender: FDA-Public Use
  Company Number: 2006048887

PATIENT
  Age: 77 Year
  Sex: Male

DRUGS (7)
  1. SILDENAFIL CITRATE [Suspect]
     Indication: ERECTILE DYSFUNCTION
     Dosage: 50 MG, AS NECESSARY, ORAL
     Route: 048
  2. OCUVITE (ASCORBIC ACID, RETINOL, TOCOPHEROL) [Concomitant]
  3. SELENIUM (SELENIUM) [Concomitant]
  4. VITAMIN C (VITAMIN C) [Concomitant]
  5. VITAMIN E [Concomitant]
  6. ZINC (ZINC) [Concomitant]
  7. AUXINA A MASIVA (RETINOL) [Concomitant]

REACTIONS (2)
  - BLINDNESS [None]
  - CONTRAINDICATION TO MEDICAL TREATMENT [None]
